FAERS Safety Report 6123198-6 (Version None)
Quarter: 2009Q1

REPORT INFORMATION
  Report Type: 
  Country: None (occurrence: None)
  Receive Date: 20090318
  Receipt Date: 20090311
  Transmission Date: 20090719
  Serious: Yes (Hospitalization, Other)
  Sender: FDA-Public Use
  Company Number: PHHY2009MX08482

PATIENT
  Age: 70 Year
  Sex: Female

DRUGS (1)
  1. DIOVAN [Suspect]
     Indication: HYPERTENSION
     Dosage: 80 MG, QD
     Route: 048
     Dates: start: 20070801

REACTIONS (5)
  - BLINDNESS [None]
  - CATARACT [None]
  - CATARACT OPERATION [None]
  - RETINAL TEAR [None]
  - RETINOPATHY HYPERTENSIVE [None]
